FAERS Safety Report 20230218 (Version 2)
Quarter: 2021Q4

REPORT INFORMATION
  Report Type: Spontaneous
  Country: GB (occurrence: GB)
  Receive Date: 20211226
  Receipt Date: 20211229
  Transmission Date: 20220303
  Serious: Yes (Death)
  Sender: FDA-Public Use
  Company Number: GB-BAXTER-2021BAX041361

PATIENT
  Age: 56 Year

DRUGS (1)
  1. SODIUM CHLORIDE [Suspect]
     Active Substance: SODIUM CHLORIDE
     Indication: Product used for unknown indication
     Dosage: SALINE 0.9% 1L BAG?ROUTE: INTRAVENOUS INFUSION
     Route: 042
     Dates: start: 20211130, end: 20211210

REACTIONS (1)
  - Death [Fatal]

NARRATIVE: CASE EVENT DATE: 20211210
